FAERS Safety Report 14852010 (Version 1)
Quarter: 2018Q2

REPORT INFORMATION
  Report Type: Spontaneous
  Country: FR (occurrence: FR)
  Receive Date: 20180507
  Receipt Date: 20180507
  Transmission Date: 20180711
  Serious: Yes (Other)
  Sender: FDA-Public Use
  Company Number: PHHY2017FR201470

PATIENT
  Sex: Female

DRUGS (2)
  1. DIGOXIN. [Suspect]
     Active Substance: DIGOXIN
     Indication: TACHYCARDIA FOETAL
     Route: 065
  2. SOTALOL. [Suspect]
     Active Substance: SOTALOL
     Indication: TACHYCARDIA FOETAL
     Dosage: 80 MG, QD (INITIAL DOSE)
     Route: 065

REACTIONS (4)
  - Presyncope [Recovered/Resolved]
  - Maternal exposure during pregnancy [Unknown]
  - Sinus bradycardia [Recovered/Resolved]
  - Live birth [Unknown]
